FAERS Safety Report 25187031 (Version 1)
Quarter: 2025Q2

REPORT INFORMATION
  Report Type: Other
  Country: JP (occurrence: JP)
  Receive Date: 20250411
  Receipt Date: 20250411
  Transmission Date: 20250717
  Serious: Yes (Hospitalization, Other)
  Sender: ALVOGEN
  Company Number: JP-ALVOGEN-2025097724

PATIENT
  Age: 68 Year
  Sex: Female
  Weight: 53 kg

DRUGS (6)
  1. TRAZODONE [Suspect]
     Active Substance: TRAZODONE HYDROCHLORIDE
     Indication: Suicide attempt
  2. LACOSAMIDE [Suspect]
     Active Substance: LACOSAMIDE
     Indication: Suicide attempt
  3. ALPRAZOLAM [Suspect]
     Active Substance: ALPRAZOLAM
     Indication: Suicide attempt
  4. MIRTAZAPINE [Suspect]
     Active Substance: MIRTAZAPINE
     Indication: Suicide attempt
  5. LEMBOREXANT [Concomitant]
     Active Substance: LEMBOREXANT
     Indication: Product used for unknown indication
  6. LEVODOPA [Concomitant]
     Active Substance: LEVODOPA
     Indication: Parkinson^s disease

REACTIONS (15)
  - Suicide attempt [Unknown]
  - Shock [Recovered/Resolved]
  - Electrocardiogram QRS complex prolonged [Unknown]
  - Cardiotoxicity [Unknown]
  - Coma [Unknown]
  - Toxicity to various agents [Unknown]
  - Electrocardiogram PR prolongation [Unknown]
  - Nodal rhythm [Unknown]
  - Respiratory acidosis [Unknown]
  - Ventricular tachycardia [Unknown]
  - Electrocardiogram QT prolonged [Unknown]
  - Hypotension [Recovering/Resolving]
  - Labelled drug-drug interaction issue [Unknown]
  - Bradycardia [Recovered/Resolved]
  - Overdose [Unknown]
